FAERS Safety Report 14577970 (Version 1)
Quarter: 2018Q1

REPORT INFORMATION
  Report Type: Spontaneous
  Country: FR (occurrence: FR)
  Receive Date: 20180227
  Receipt Date: 20180227
  Transmission Date: 20180509
  Serious: Yes (Other)
  Sender: FDA-Public Use
  Company Number: FR-PFIZER INC-2018078019

PATIENT
  Age: 60 Year
  Sex: Male
  Weight: 50 kg

DRUGS (2)
  1. VFEND [Suspect]
     Active Substance: VORICONAZOLE
     Indication: ASPERGILLOMA
     Dosage: UNK
     Route: 041
     Dates: end: 20170311
  2. SPORANOX [Concomitant]
     Active Substance: ITRACONAZOLE
     Indication: DRUG-INDUCED LIVER INJURY
     Dosage: UNK

REACTIONS (2)
  - Toxic skin eruption [Recovered/Resolved with Sequelae]
  - Neuropathy peripheral [Recovered/Resolved with Sequelae]

NARRATIVE: CASE EVENT DATE: 20170201
